FAERS Safety Report 6457681-0 (Version None)
Quarter: 2009Q4

REPORT INFORMATION
  Report Type: 
  Country: None (occurrence: None)
  Receive Date: 20091125
  Receipt Date: 20091117
  Transmission Date: 20100525
  Serious: Yes (Other)
  Sender: FDA-Public Use
  Company Number: US-TYCO HEALTHCARE/MALLINCKRODT-T200902128

PATIENT
  Age: 71 Year
  Sex: Female

DRUGS (22)
  1. PAMELOR [Suspect]
     Dosage: 50 MG, QD
     Dates: start: 20070101
  2. PAMELOR [Suspect]
     Dosage: 25 MG, QD
     Dates: start: 20070101
  3. QUETIAPINE [Suspect]
     Indication: DEPRESSION
     Dosage: 300 MG, HS
     Dates: start: 20070101
  4. QUETIAPINE [Suspect]
     Dosage: 200 MG, QHS
     Dates: start: 20070101
  5. QUETIAPINE [Suspect]
     Dosage: 150 MG QHS
     Dates: start: 20070101
  6. QUETIAPINE [Suspect]
     Dosage: 50 MG, QHS
     Dates: start: 20070101
  7. VENLAFAXINE [Suspect]
     Dosage: 37.5 MG, UNK
     Dates: start: 20070101
  8. VENLAFAXINE [Suspect]
     Dosage: 150 MG, UNK
     Dates: start: 20070101
  9. RISPERIDONE [Suspect]
     Dosage: 1 MG, QHS
     Dates: start: 20070101
  10. RISPERIDONE [Suspect]
     Dosage: 2.5 MG, QD
     Dates: start: 20070101, end: 20070101
  11. MIRTAZAPINE [Suspect]
     Indication: SLEEP DISORDER
     Dosage: 45 MG, QD
     Dates: start: 20070101
  12. LORAZEPAM [Suspect]
     Indication: EXTRAPYRAMIDAL DISORDER
     Dosage: 0.5 MG, BID
     Dates: start: 20070101
  13. LORAZEPAM [Suspect]
     Dosage: 1 MG, BID
     Dates: start: 20070101
  14. LORAZEPAM [Suspect]
     Dosage: 0.5 MG, PRN
     Dates: start: 20070101
  15. METOPROLOL [Concomitant]
     Indication: BLOOD PRESSURE INCREASED
     Dosage: 50 MG,
     Dates: start: 20070101
  16. ASPIRIN [Concomitant]
     Dosage: 325 MG, QD
     Dates: start: 20070101
  17. ATORVASTATIN [Concomitant]
     Dosage: 80 MG, QD
     Dates: start: 20070101
  18. CLOPIDOGREL [Concomitant]
     Dosage: 75 MG, QD
     Dates: start: 20070101
  19. ESOMEPRAZOLE [Concomitant]
     Dosage: 40 MG, QD
  20. SENNA-MINT WAF [Concomitant]
     Dosage: UNK
     Dates: start: 20070101
  21. DOCUSATE SODIUM [Concomitant]
     Dosage: UNK
     Dates: start: 20070101
  22. MULTIVITAMIN                       /00831701/ [Concomitant]
     Dosage: UNK
     Dates: start: 20070101

REACTIONS (11)
  - AGEUSIA [None]
  - CONSTIPATION [None]
  - COSTOCHONDRITIS [None]
  - DRUG INEFFECTIVE [None]
  - DRY MOUTH [None]
  - FEAR [None]
  - HYPOPHAGIA [None]
  - MOBILITY DECREASED [None]
  - ORTHOSTATIC HYPOTENSION [None]
  - SUICIDAL IDEATION [None]
  - WEIGHT DECREASED [None]
